FAERS Safety Report 8406524-4 (Version None)
Quarter: 2012Q2

REPORT INFORMATION
  Report Type: 
  Country: None (occurrence: None)
  Receive Date: 20120604
  Receipt Date: 20110628
  Transmission Date: 20120825
  Serious: No
  Sender: FDA-Public Use
  Company Number: US-COVIDIEN/TYCO HEALTHCARE/MALLINCKRODT-T201101314

PATIENT
  Sex: Male

DRUGS (1)
  1. ACETAMINOPHEN AND CODEINE PHOSPHATE [Suspect]
     Indication: PAIN
     Dosage: 1 TAB Q 4-6 HRS, PRN
     Route: 048
     Dates: start: 20110616, end: 20110621

REACTIONS (3)
  - FLUSHING [None]
  - INSOMNIA [None]
  - NAUSEA [None]
